FAERS Safety Report 16103046 (Version 4)
Quarter: 2019Q2

REPORT INFORMATION
  Report Type: Report from Study
  Country: US (occurrence: US)
  Receive Date: 20190321
  Receipt Date: 20190412
  Transmission Date: 20190711
  Serious: Yes (Other)
  Sender: FDA-Public Use
  Company Number: US-SHIRE-US201908709

PATIENT
  Sex: Female

DRUGS (1)
  1. LIALDA [Suspect]
     Active Substance: MESALAMINE
     Indication: COLITIS ULCERATIVE
     Dosage: 4 DOSAGE FORM, 1X/DAY:QD
     Route: 048
     Dates: start: 2014

REACTIONS (4)
  - Neutropenia [Unknown]
  - Colitis ulcerative [Unknown]
  - Clostridium difficile infection [Unknown]
  - Malaise [Unknown]
